FAERS Safety Report 6825195-1 (Version None)
Quarter: 2010Q3

REPORT INFORMATION
  Report Type: 
  Country: None (occurrence: None)
  Receive Date: 20100708
  Receipt Date: 20061213
  Transmission Date: 20110219
  Serious: No
  Sender: FDA-Public Use
  Company Number: US-PFIZER INC-2006154237

PATIENT
  Sex: Male
  Weight: 72.57 kg

DRUGS (6)
  1. CHANTIX [Suspect]
     Indication: SMOKING CESSATION THERAPY
     Dates: start: 20061201
  2. GABAPENTIN [Concomitant]
     Indication: HERPES ZOSTER
  3. BACLOFEN [Concomitant]
  4. ZANAFLEX [Concomitant]
  5. PERCOCET [Concomitant]
  6. ALPRAZOLAM [Concomitant]

REACTIONS (2)
  - ASTHENIA [None]
  - FATIGUE [None]
